FAERS Safety Report 21774542 (Version 2)
Quarter: 2025Q2

REPORT INFORMATION
  Report Type: Spontaneous
  Country: US (occurrence: US)
  Receive Date: 20221224
  Receipt Date: 20250619
  Transmission Date: 20250717
  Serious: Yes (Other)
  Sender: AUROBINDO
  Company Number: US-AUROBINDO-AUR-APL-2022-054315

PATIENT
  Age: 14 Year
  Sex: Male

DRUGS (5)
  1. CLOPIDOGREL [Suspect]
     Active Substance: CLOPIDOGREL BISULFATE
     Indication: Ischaemic stroke
     Route: 065
     Dates: start: 202006
  2. ASPIRIN [Suspect]
     Active Substance: ASPIRIN
     Indication: Ischaemic stroke
     Route: 065
  3. HEPARIN [Concomitant]
     Active Substance: HEPARIN SODIUM
     Indication: Ischaemic stroke
     Route: 065
  4. EPTIFIBATIDE [Concomitant]
     Active Substance: EPTIFIBATIDE
     Indication: Hemiplegia
     Route: 013
  5. EPTIFIBATIDE [Concomitant]
     Active Substance: EPTIFIBATIDE
     Indication: Hemiplegia
     Route: 041

REACTIONS (1)
  - Drug resistance [Unknown]
